FAERS Safety Report 9606962 (Version 1)
Quarter: 2013Q4

REPORT INFORMATION
  Report Type: Report from Study
  Country: BR (occurrence: BR)
  Receive Date: 20131008
  Receipt Date: 20131008
  Transmission Date: 20140711
  Serious: Yes (Other)
  Sender: FDA-Public Use
  Company Number: PHHY2013BR108381

PATIENT
  Sex: Male

DRUGS (11)
  1. FORASEQ [Suspect]
     Dosage: UNK UKN, UNK
  2. ONBREZ [Suspect]
     Dosage: UNK UKN, UNK
  3. BRONCHODILATORS [Concomitant]
  4. SALMETEROL/FLUTICASONPROPIONAAT [Concomitant]
     Dosage: UNK UKN, UNK
  5. XANTHINE [Concomitant]
     Dosage: UNK UKN, UNK
     Route: 048
  6. FENOTEROL [Concomitant]
     Dosage: UNK UKN, UNK
  7. IPRATROPIUM [Concomitant]
     Dosage: UNK UKN, UNK
  8. TIOTROPIUM [Concomitant]
     Dosage: UNK UKN, UNK
  9. SALBUTAMOL [Concomitant]
     Dosage: UNK UKN, UNK
  10. CORTICOSTEROIDS [Concomitant]
     Dosage: UNK UKN, UNK
     Route: 048
  11. ROFLUMILAST [Concomitant]
     Dosage: UNK UKN, UNK

REACTIONS (2)
  - Emphysema [Unknown]
  - Oxygen saturation decreased [Unknown]
